FAERS Safety Report 21753010 (Version 2)
Quarter: 2023Q1

REPORT INFORMATION
  Report Type: Spontaneous
  Country: US (occurrence: US)
  Receive Date: 20221220
  Receipt Date: 20230112
  Transmission Date: 20230417
  Serious: Yes (Hospitalization, Other)
  Sender: FDA-Public Use
  Company Number: US-GLAXOSMITHKLINE-US2022187400

PATIENT

DRUGS (2)
  1. ZEJULA [Suspect]
     Active Substance: NIRAPARIB
     Indication: Malignant peritoneal neoplasm
     Dosage: 300 MG, QD
     Dates: start: 20221127
  2. OMEPRAZOLE [Suspect]
     Active Substance: OMEPRAZOLE
     Indication: Gastrooesophageal reflux disease
     Dosage: UNK

REACTIONS (16)
  - Hospitalisation [Unknown]
  - Haematemesis [Unknown]
  - Stomatitis [Unknown]
  - Headache [Unknown]
  - Constipation [Unknown]
  - Vomiting [Unknown]
  - Decreased appetite [Unknown]
  - Asthenia [Unknown]
  - Diarrhoea [Unknown]
  - Gastrooesophageal reflux disease [Unknown]
  - Blood potassium decreased [Unknown]
  - Feeding disorder [Unknown]
  - Dyspepsia [Unknown]
  - Blood pressure abnormal [Unknown]
  - Product dose omission issue [Unknown]
  - Drug ineffective [Unknown]
